FAERS Safety Report 25350667 (Version 3)
Quarter: 2025Q3

REPORT INFORMATION
  Report Type: Spontaneous
  Country: US (occurrence: US)
  Receive Date: 20250523
  Receipt Date: 20250924
  Transmission Date: 20251021
  Serious: No
  Sender: BRISTOL-MYERS SQUIBB COMPANY
  Company Number: US-BRISTOL-MYERS SQUIBB COMPANY-2025-073973

PATIENT
  Age: 65 Year
  Sex: Female

DRUGS (2)
  1. KRAZATI [Suspect]
     Active Substance: ADAGRASIB
     Indication: Product used for unknown indication
     Dosage: TAKE 3 TABLETS (600MG) BY MOUTH TWICE A DAY
  2. KRAZATI [Suspect]
     Active Substance: ADAGRASIB
     Dosage: TAKE 1 TABLET TWICE DAILY

REACTIONS (1)
  - Adverse drug reaction [Unknown]
